FAERS Safety Report 18037055 (Version 2)
Quarter: 2020Q3

REPORT INFORMATION
  Report Type: Spontaneous
  Country: US (occurrence: US)
  Receive Date: 20200717
  Receipt Date: 20200814
  Transmission Date: 20201103
  Serious: No
  Sender: FDA-Public Use
  Company Number: US-BAUSCH-BL-2020-019523

PATIENT
  Age: 65 Year
  Sex: Female
  Weight: 53.57 kg

DRUGS (1)
  1. ALAWAY [Suspect]
     Active Substance: KETOTIFEN FUMARATE
     Indication: HYPERSENSITIVITY
     Dosage: 1 DROP IN EACH EYE
     Route: 047
     Dates: start: 20200525, end: 20200528

REACTIONS (2)
  - Expired product administered [Unknown]
  - Iritis [Recovering/Resolving]

NARRATIVE: CASE EVENT DATE: 20200525
